FAERS Safety Report 5393935-7 (Version None)
Quarter: 2007Q3

REPORT INFORMATION
  Report Type: 
  Country: None (occurrence: None)
  Receive Date: 20070723
  Receipt Date: 20061130
  Transmission Date: 20080115
  Serious: No
  Sender: FDA-Public Use
  Company Number: A0627944A

PATIENT
  Age: 56 Year
  Sex: Female

DRUGS (6)
  1. AVANDIA [Suspect]
     Dosage: 4MG PER DAY
     Route: 048
     Dates: start: 19990101
  2. INDERAL [Concomitant]
  3. LISINOPRIL [Concomitant]
  4. ASPIRIN [Concomitant]
  5. LYRICA [Concomitant]
  6. GLUCOPHAGE [Concomitant]

REACTIONS (1)
  - OEDEMA PERIPHERAL [None]
